FAERS Safety Report 6242165-5 (Version None)
Quarter: 2009Q2

REPORT INFORMATION
  Report Type: 
  Country: None (occurrence: None)
  Receive Date: 20090624
  Receipt Date: 20090611
  Transmission Date: 20091009
  Serious: Yes (Other)
  Sender: FDA-Public Use
  Company Number: GB-RANBAXY-2009RR-24942

PATIENT
  Age: 47 Year
  Sex: Female
  Weight: 79 kg

DRUGS (15)
  1. SIMVASTATIN [Suspect]
     Indication: CARDIOVASCULAR EVENT PROPHYLAXIS
     Dosage: 40 MG, UNK
     Route: 048
     Dates: start: 20051130, end: 20090212
  2. ALENDRONATE SODIUM [Concomitant]
     Dosage: 70 MG, 1/WEEK
     Route: 048
     Dates: start: 20080401
  3. ASACOL [Concomitant]
     Indication: COLITIS
     Dosage: 1200 MG, TID
     Route: 048
     Dates: start: 20000401
  4. CALCICHEW D3 [Concomitant]
     Indication: CALCIUM DEFICIENCY
     Dosage: 1 DF, BID
     Route: 048
     Dates: start: 20080401
  5. CETIRIZINE [Concomitant]
     Dosage: 10 MG, QD
     Route: 048
  6. ESOMEPRAZOLE MAGNESIUM [Concomitant]
     Indication: PROPHYLAXIS AGAINST GASTROINTESTINAL ULCER
     Dosage: 20 MG, QD
     Route: 048
     Dates: start: 20031101
  7. FOLIC ACID [Concomitant]
     Indication: FOLATE DEFICIENCY
     Dosage: 5 MG, 1/WEEK
     Route: 048
  8. MELOXICAM [Concomitant]
     Indication: PAIN
     Dosage: 7.5 MG, UNK
     Route: 048
     Dates: start: 20050801
  9. MELOXICAM [Concomitant]
     Indication: INFLAMMATION
  10. MESALAZINE [Concomitant]
     Dosage: 1 DF, BID
     Route: 054
  11. METHOTREXATE [Concomitant]
     Indication: ENTEROCOLITIS
     Dosage: 2.5 MG, 1/WEEK
     Route: 048
     Dates: start: 20040701
  12. PREDNISOLONE [Concomitant]
     Dosage: 20 MG, UNK
     Route: 054
  13. SALMETEROL [Concomitant]
     Dosage: 2 DF, BID
     Route: 055
  14. SALMETEROL/FLUTICASONE [Concomitant]
     Indication: ASTHMA
     Dosage: 2 DF, BID
     Route: 055
  15. VENTOLIN [Concomitant]
     Indication: ASTHMA
     Dosage: 2 DF, PRN
     Route: 055

REACTIONS (1)
  - SENSORY DISTURBANCE [None]
